FAERS Safety Report 8095629-6 (Version None)
Quarter: 2012Q1

REPORT INFORMATION
  Report Type: 
  Country: None (occurrence: None)
  Receive Date: 20120129
  Receipt Date: 20111228
  Transmission Date: 20120608
  Serious: No
  Sender: FDA-Public Use
  Company Number: US-ABBOTT-11P-163-0887283-00

PATIENT
  Age: 49 Year
  Sex: Male

DRUGS (3)
  1. UNKNOWN MEDICATION [Concomitant]
     Indication: BLOOD CHOLESTEROL INCREASED
     Dosage: 1 PILL DAILY
  2. HUMIRA [Suspect]
     Indication: PSORIASIS
     Dates: start: 20111001
  3. UNKNOWN MEDICATION [Concomitant]
     Indication: HYPERTENSION
     Dosage: 2 PILLS DAILY

REACTIONS (2)
  - URINE ODOUR ABNORMAL [None]
  - SKIN ODOUR ABNORMAL [None]
